FAERS Safety Report 12741449 (Version 4)
Quarter: 2017Q1

REPORT INFORMATION
  Report Type: Spontaneous
  Country: US (occurrence: US)
  Receive Date: 20160914
  Receipt Date: 20170217
  Transmission Date: 20170428
  Serious: Yes (Hospitalization)
  Sender: FDA-Public Use
  Company Number: US-PFIZER INC-2016430150

PATIENT
  Age: 68 Year
  Sex: Female

DRUGS (2)
  1. XELJANZ XR [Suspect]
     Active Substance: TOFACITINIB CITRATE
     Indication: RHEUMATOID ARTHRITIS
     Dosage: 22 MG, DAILY (11 MG 2 TABLETS DAILY)
     Route: 048
     Dates: start: 20160825, end: 20160901
  2. HUMIRA [Suspect]
     Active Substance: ADALIMUMAB
     Indication: RHEUMATOID ARTHRITIS
     Dosage: 2 WEEKS APART FOR 7 INJECTIONS, (1 IN 2 WEEKS)
     Route: 058
     Dates: start: 20160519, end: 20160825

REACTIONS (5)
  - Rash [Recovered/Resolved]
  - Infected dermal cyst [Recovered/Resolved]
  - Drug hypersensitivity [Recovered/Resolved]
  - Upper respiratory tract infection [Recovered/Resolved]
  - Headache [Recovered/Resolved]

NARRATIVE: CASE EVENT DATE: 20160901
